FAERS Safety Report 4686387-3 (Version None)
Quarter: 2005Q2

REPORT INFORMATION
  Report Type: 
  Country: None (occurrence: None)
  Receive Date: 20050606
  Receipt Date: 20050525
  Transmission Date: 20051028
  Serious: Yes (Other)
  Sender: FDA-Public Use
  Company Number: 2005080787

PATIENT
  Age: 46 Year
  Sex: Male

DRUGS (1)
  1. HYDROCORTISONE SODIUM SUCCINATE [Suspect]
     Indication: URTICARIA

REACTIONS (3)
  - ANAPHYLACTOID REACTION [None]
  - ERYTHEMA [None]
  - URTICARIA [None]
